FAERS Safety Report 13711037 (Version 1)
Quarter: 2017Q2

REPORT INFORMATION
  Report Type: Spontaneous
  Country: US (occurrence: US)
  Receive Date: 20170630
  Receipt Date: 20170630
  Transmission Date: 20170830
  Serious: Yes (Hospitalization)
  Sender: FDA-Public Use
  Company Number: None

PATIENT
  Age: 73 Year
  Sex: Male

DRUGS (2)
  1. LISINOPRIL. [Suspect]
     Active Substance: LISINOPRIL
     Indication: HYPERTENSION
     Route: 048
     Dates: start: 20140501, end: 20160701
  2. COLCHICINE. [Suspect]
     Active Substance: COLCHICINE
     Indication: PAIN
     Route: 048
     Dates: start: 20160608, end: 20160611

REACTIONS (3)
  - Swollen tongue [None]
  - Angioedema [None]
  - Gout [None]

NARRATIVE: CASE EVENT DATE: 20160609
